FAERS Safety Report 10337797 (Version 1)
Quarter: 2014Q3

REPORT INFORMATION
  Report Type: Spontaneous
  Country: US (occurrence: US)
  Receive Date: 20140724
  Receipt Date: 20140724
  Transmission Date: 20150326
  Serious: No
  Sender: FDA-Public Use
  Company Number: US-UNITED THERAPEUTICS-UTC-045967

PATIENT
  Age: 67 Year
  Sex: Female
  Weight: 68.04 kg

DRUGS (2)
  1. REMODULIN [Suspect]
     Active Substance: TREPROSTINIL
     Route: 058
     Dates: start: 20110331
  2. TRACLEER [Concomitant]
     Active Substance: BOSENTAN\BOSENTAN MONOHYDRATE

REACTIONS (5)
  - Overdose [Unknown]
  - Headache [Unknown]
  - Pain in jaw [Unknown]
  - Neck pain [Unknown]
  - Infusion site pain [Unknown]

NARRATIVE: CASE EVENT DATE: 20140309
